FAERS Safety Report 8933009 (Version 1)
Quarter: 2013Q1

REPORT INFORMATION
  Report Type: Spontaneous
  Country: US (occurrence: None)
  Receive Date: 20121127
  Receipt Date: 20121127
  Transmission Date: 20140127
  Serious: Yes (Hospitalization)
  Sender: FDA-Public Use
  Company Number: None

PATIENT
  Age: 69 Year
  Sex: Male
  Weight: 68.7 kg

DRUGS (1)
  1. TK1258 [Suspect]
     Dosage: 300MGX5DAYS, 0MGX2DAYS
     Dates: start: 20120510

REACTIONS (1)
  - Pneumonia aspiration [None]
